FAERS Safety Report 10070845 (Version 2)
Quarter: 2014Q2

REPORT INFORMATION
  Report Type: Report from Study
  Country: NL (occurrence: NL)
  Receive Date: 20140410
  Receipt Date: 20140505
  Transmission Date: 20141212
  Serious: Yes (Death)
  Sender: FDA-Public Use
  Company Number: PHHY2014NL043392

PATIENT
  Sex: Female

DRUGS (13)
  1. ACLASTA [Suspect]
     Indication: OSTEOPOROSIS
     Dosage: 5 MG, ONCE EVERY 52 WEEKS
     Route: 042
     Dates: start: 20110426
  2. ACLASTA [Suspect]
     Dosage: 5 MG, ONCE EVERY 52 WEEKS
     Route: 042
     Dates: start: 20120424
  3. ACLASTA [Suspect]
     Dosage: 5 MG, ONCE EVERY 52 WEEKS
     Route: 042
     Dates: start: 20130417
  4. CALCICHEW [Concomitant]
     Dosage: 1000/800 (UNITS NOT SPECIFIED)
  5. VALSARTAN [Concomitant]
     Dosage: 80 MG, UNK
  6. FOLIC ACID [Concomitant]
     Dosage: UNK UKN, UNK
     Dates: end: 201311
  7. FOSINOPRIL [Concomitant]
     Dosage: 20 MG, UNK
  8. METOTREXATE [Concomitant]
     Dosage: UNK UKN, UNK
     Dates: end: 201311
  9. HYDROCHLOROTHIAZIDE [Concomitant]
     Dosage: 12.5 MG, UNK
  10. ENBREL [Concomitant]
     Dosage: UNK UKN, UNK
     Dates: end: 201311
  11. ESOMEPRAZOLE [Concomitant]
     Dosage: 20 MG, UNK
  12. SIMVASTATIN [Concomitant]
     Dosage: UNK UKN, UNK
  13. SERETIDE [Concomitant]
     Dosage: UNK UKN, UNK

REACTIONS (1)
  - Metastatic bronchial carcinoma [Fatal]
